FAERS Safety Report 6840587-2 (Version None)
Quarter: 2010Q3

REPORT INFORMATION
  Report Type: 
  Country: None (occurrence: None)
  Receive Date: 20100714
  Receipt Date: 20100702
  Transmission Date: 20110219
  Serious: Yes (Hospitalization)
  Sender: FDA-Public Use
  Company Number: B0663568A

PATIENT
  Sex: Male

DRUGS (6)
  1. ZELITREX [Suspect]
     Indication: ANTIVIRAL PROPHYLAXIS
     Dosage: 500MG TWICE PER DAY
     Route: 048
     Dates: start: 20100315, end: 20100520
  2. BACTRIM DS [Suspect]
     Indication: PROPHYLAXIS
     Route: 048
     Dates: start: 20100315, end: 20100520
  3. CORTANCYL [Concomitant]
     Indication: LYMPHOMA
     Route: 048
     Dates: start: 20091207, end: 20100607
  4. DEPAKENE [Concomitant]
     Indication: CONVULSION
     Dosage: 500MG TWICE PER DAY
     Route: 048
     Dates: start: 20100220, end: 20100527
  5. OMEPRAZOLE [Concomitant]
     Indication: PRODUCT USED FOR UNKNOWN INDICATION
     Dosage: 20MG PER DAY
     Route: 048
  6. CALCIUM + VITAMIN D [Concomitant]
     Indication: PRODUCT USED FOR UNKNOWN INDICATION
     Route: 065

REACTIONS (8)
  - ABDOMINAL PAIN [None]
  - EOSINOPHILIA [None]
  - HAEMORRHAGE [None]
  - PANCREATITIS ACUTE [None]
  - RENAL FAILURE CHRONIC [None]
  - SEPTIC SHOCK [None]
  - STAPHYLOCOCCAL SEPSIS [None]
  - VOMITING [None]
